FAERS Safety Report 6166714-0 (Version None)
Quarter: 2009Q2

REPORT INFORMATION
  Report Type: 
  Country: None (occurrence: None)
  Receive Date: 20090423
  Receipt Date: 20090423
  Transmission Date: 20091009
  Serious: No
  Sender: FDA-Public Use
  Company Number: None

PATIENT

DRUGS (2)
  1. RISPERIDONE [Suspect]
  2. ROPINIROLE [Suspect]

REACTIONS (1)
  - MEDICATION ERROR [None]
